FAERS Safety Report 11599130 (Version 1)
Quarter: 2015Q4

REPORT INFORMATION
  Report Type: Spontaneous
  Country: US (occurrence: US)
  Receive Date: 20151006
  Receipt Date: 20151006
  Transmission Date: 20160304
  Serious: Yes (Hospitalization)
  Sender: FDA-Public Use
  Company Number: US-MYLANLABS-2015M1032820

PATIENT

DRUGS (2)
  1. BUPRENORPHINE. [Suspect]
     Active Substance: BUPRENORPHINE
     Indication: PRODUCT USED FOR UNKNOWN INDICATION
     Dosage: 12MG
     Route: 060
  2. LOPERAMIDE [Suspect]
     Active Substance: LOPERAMIDE
     Indication: PRODUCT USED FOR UNKNOWN INDICATION
     Dosage: 400 MG DAILY
     Route: 065

REACTIONS (11)
  - Apnoea [Recovered/Resolved]
  - Agitation [Unknown]
  - Hallucination [Unknown]
  - Pulse absent [Recovered/Resolved]
  - Intentional overdose [Unknown]
  - Drug withdrawal syndrome [Unknown]
  - Conduction disorder [Recovered/Resolved]
  - Syncope [Recovered/Resolved]
  - Ventricular tachycardia [Recovered/Resolved]
  - Arrhythmia [Recovered/Resolved]
  - Drug abuse [Unknown]
